FAERS Safety Report 20612695 (Version 1)
Quarter: 2022Q1

REPORT INFORMATION
  Report Type: Spontaneous
  Country: IT (occurrence: IT)
  Receive Date: 20220318
  Receipt Date: 20220318
  Transmission Date: 20220423
  Serious: Yes (Hospitalization)
  Sender: FDA-Public Use
  Company Number: IT-OAKRUM PHARMA-2022OAK00001

PATIENT
  Age: 73 Year
  Sex: Female

DRUGS (1)
  1. DEFERASIROX [Suspect]
     Active Substance: DEFERASIROX
     Indication: Serum ferritin increased
     Dosage: 14 MG/KG DAILY, 2 TABLETS OF 360 MG/DIE
     Route: 065

REACTIONS (1)
  - Hypersensitivity myocarditis [Recovered/Resolved]
